FAERS Safety Report 5272503-1 (Version None)
Quarter: 2007Q1

REPORT INFORMATION
  Report Type: 
  Country: None (occurrence: None)
  Receive Date: 20070322
  Receipt Date: 20060516
  Transmission Date: 20070707
  Serious: Yes (Hospitalization)
  Sender: FDA-Public Use
  Company Number: US-BRISTOL-MYERS SQUIBB COMPANY-13378740

PATIENT

DRUGS (1)
  1. KENALOG [Suspect]

REACTIONS (1)
  - ANAPHYLACTIC REACTION [None]
